FAERS Safety Report 11322775 (Version 1)
Quarter: 2015Q3

REPORT INFORMATION
  Report Type: Spontaneous
  Country: US (occurrence: None)
  Receive Date: 20150729
  Receipt Date: 20150729
  Transmission Date: 20151125
  Serious: Yes (Other)
  Sender: FDA-Public Use
  Company Number: None

PATIENT
  Age: 16 Year
  Sex: Female
  Weight: 63.6 kg

DRUGS (1)
  1. METHYLPHENIDATE ER [Suspect]
     Active Substance: METHYLPHENIDATE
     Indication: ATTENTION DEFICIT/HYPERACTIVITY DISORDER
     Dosage: CONCERTA 54 QD ORAL
     Route: 048
     Dates: start: 2013

REACTIONS (7)
  - Attention deficit/hyperactivity disorder [None]
  - Product quality issue [None]
  - Impulsive behaviour [None]
  - Product substitution issue [None]
  - Psychomotor hyperactivity [None]
  - Condition aggravated [None]
  - Appetite disorder [None]
